FAERS Safety Report 19477022 (Version 2)
Quarter: 2021Q3

REPORT INFORMATION
  Report Type: Report from Study
  Country: IT (occurrence: IT)
  Receive Date: 20210630
  Receipt Date: 20210712
  Transmission Date: 20211014
  Serious: Yes (Hospitalization)
  Sender: FDA-Public Use
  Company Number: IT-ACCORD-229852

PATIENT
  Age: 87 Year
  Sex: Female

DRUGS (7)
  1. CLEXANE [Suspect]
     Active Substance: ENOXAPARIN SODIUM
     Indication: ATRIAL FIBRILLATION
  2. ATORVASTATIN [Concomitant]
     Active Substance: ATORVASTATIN
  3. PANTORC [Concomitant]
     Active Substance: PANTOPRAZOLE SODIUM
  4. CLOPIDOGREL [Suspect]
     Active Substance: CLOPIDOGREL BISULFATE
     Indication: PRODUCT USED FOR UNKNOWN INDICATION
  5. AMLODIPINE [Concomitant]
     Active Substance: AMLODIPINE BESYLATE
  6. BISOPROLOL [Concomitant]
     Active Substance: BISOPROLOL
  7. TRIATEC [Concomitant]

REACTIONS (1)
  - Rectal haemorrhage [Not Recovered/Not Resolved]

NARRATIVE: CASE EVENT DATE: 20210327
